FAERS Safety Report 25864868 (Version 3)
Quarter: 2025Q4

REPORT INFORMATION
  Report Type: Spontaneous
  Country: CN (occurrence: CN)
  Receive Date: 20250930
  Receipt Date: 20251016
  Transmission Date: 20260117
  Serious: Yes (Hospitalization, Other)
  Sender: DAIICHI
  Company Number: CN-DSJP-DS-2025-166740-CN

PATIENT
  Age: 78 Year
  Sex: Male
  Weight: 47 kg

DRUGS (1)
  1. ENHERTU [Suspect]
     Active Substance: FAM-TRASTUZUMAB DERUXTECAN-NXKI
     Indication: Gastric cancer
     Dosage: 250 MG (100 MG + 150 MG), SINGLE
     Route: 041
     Dates: start: 20250918

REACTIONS (3)
  - Intestinal obstruction [Not Recovered/Not Resolved]
  - Septic shock [Not Recovered/Not Resolved]
  - Klebsiella infection [Not Recovered/Not Resolved]

NARRATIVE: CASE EVENT DATE: 20250919
